FAERS Safety Report 23962259 (Version 1)
Quarter: 2024Q2

REPORT INFORMATION
  Report Type: Spontaneous
  Country: FR (occurrence: FR)
  Receive Date: 20240611
  Receipt Date: 20240611
  Transmission Date: 20240716
  Serious: Yes (Other)
  Sender: FDA-Public Use
  Company Number: FR-SUN PHARMACEUTICAL INDUSTRIES LTD-2024R1-450505

PATIENT
  Age: 25 Year
  Sex: Male

DRUGS (4)
  1. OLANZAPINE [Suspect]
     Active Substance: OLANZAPINE
     Indication: Schizophrenia
     Dosage: 20 MILLIGRAM, DAILY
     Route: 065
  2. OLANZAPINE [Suspect]
     Active Substance: OLANZAPINE
     Dosage: 5 MILLIGRAM, DAILY
     Route: 065
  3. CLOZAPINE [Suspect]
     Active Substance: CLOZAPINE
     Indication: Schizophrenia
     Dosage: 300 MILLIGRAM
     Route: 065
     Dates: start: 202203
  4. CLOZAPINE [Suspect]
     Active Substance: CLOZAPINE
     Dosage: 150 MILLIGRAM
     Route: 065
     Dates: start: 202203

REACTIONS (1)
  - Urticaria cholinergic [Recovering/Resolving]
